FAERS Safety Report 23925229 (Version 1)
Quarter: 2024Q2

REPORT INFORMATION
  Report Type: Spontaneous
  Country: US (occurrence: None)
  Receive Date: 20240530
  Receipt Date: 20240530
  Transmission Date: 20240716
  Serious: Yes (Other)
  Sender: FDA-Public Use
  Company Number: None

PATIENT
  Age: 49 Year
  Sex: Male
  Weight: 117 kg

DRUGS (2)
  1. WEGOVY [Suspect]
     Active Substance: SEMAGLUTIDE
     Indication: Overweight
     Dosage: OTHER QUANTITY : 1 INJECTION(S);?OTHER FREQUENCY : WEEKLY;?OTHER ROUTE : INJECTION;?
     Route: 050
     Dates: start: 20240516, end: 20240530
  2. WEGOVY [Suspect]
     Active Substance: SEMAGLUTIDE
     Indication: Diabetes mellitus

REACTIONS (16)
  - Fatigue [None]
  - Sleep terror [None]
  - Night sweats [None]
  - Urine output increased [None]
  - Arthralgia [None]
  - Neuralgia [None]
  - Insomnia [None]
  - Eructation [None]
  - Nausea [None]
  - Hallucination, visual [None]
  - Blood glucose fluctuation [None]
  - Headache [None]
  - Palpitations [None]
  - Negative thoughts [None]
  - Panic attack [None]
  - Emotional distress [None]

NARRATIVE: CASE EVENT DATE: 20240517
